FAERS Safety Report 19532740 (Version 1)
Quarter: 2021Q3

REPORT INFORMATION
  Report Type: Other
  Country: CA (occurrence: CA)
  Receive Date: 20210713
  Receipt Date: 20210713
  Transmission Date: 20211014
  Serious: Yes (Other)
  Sender: FDA-Public Use
  Company Number: CA-ROCHE-2864090

PATIENT
  Sex: Female
  Weight: 111 kg

DRUGS (13)
  1. ACTEMRA [Suspect]
     Active Substance: TOCILIZUMAB
     Route: 042
     Dates: start: 20130107
  2. ACTEMRA [Suspect]
     Active Substance: TOCILIZUMAB
     Route: 042
     Dates: start: 20141216
  3. METHOTREXATE. [Concomitant]
     Active Substance: METHOTREXATE
  4. NEXIUM [Concomitant]
     Active Substance: ESOMEPRAZOLE MAGNESIUM
  5. ACTEMRA [Suspect]
     Active Substance: TOCILIZUMAB
     Indication: RHEUMATOID ARTHRITIS
     Route: 042
  6. ACTEMRA [Suspect]
     Active Substance: TOCILIZUMAB
     Route: 042
     Dates: start: 20130313
  7. ACTEMRA [Suspect]
     Active Substance: TOCILIZUMAB
     Route: 042
     Dates: start: 2021
  8. FOLIC ACID. [Concomitant]
     Active Substance: FOLIC ACID
  9. ACTEMRA [Suspect]
     Active Substance: TOCILIZUMAB
     Route: 042
     Dates: start: 20151215
  10. PREDNISONE. [Concomitant]
     Active Substance: PREDNISONE
  11. ACTEMRA [Suspect]
     Active Substance: TOCILIZUMAB
     Dosage: 8 MG/KG
     Route: 042
     Dates: start: 20210317, end: 2021
  12. MAGNESIUM [Concomitant]
     Active Substance: MAGNESIUM
  13. REMICADE [Concomitant]
     Active Substance: INFLIXIMAB

REACTIONS (1)
  - Thyroid mass [Unknown]
